FAERS Safety Report 8502633-X (Version None)
Quarter: 2012Q3

REPORT INFORMATION
  Report Type: 
  Country: None (occurrence: None)
  Receive Date: 20120711
  Receipt Date: 20120702
  Transmission Date: 20120928
  Serious: Yes (Other)
  Sender: FDA-Public Use
  Company Number: US-PFIZER INC-2011278214

PATIENT
  Sex: Female

DRUGS (2)
  1. CELEBREX [Suspect]
     Indication: ANKYLOSING SPONDYLITIS
     Dosage: 200 MG, 2X/DAY
     Dates: start: 20110511, end: 20110916
  2. ENBREL [Suspect]
     Indication: ANKYLOSING SPONDYLITIS
     Dosage: 50 MG, QWK
     Dates: start: 20091022, end: 20111020

REACTIONS (6)
  - NASOPHARYNGITIS [None]
  - DEVICE DISLOCATION [None]
  - HEPATIC ENZYME INCREASED [None]
  - POST PROCEDURAL HAEMORRHAGE [None]
  - SINUSITIS [None]
  - ANKYLOSING SPONDYLITIS [None]
